APPROVED DRUG PRODUCT: NAROPIN
Active Ingredient: ROPIVACAINE HYDROCHLORIDE
Strength: 75MG/10ML (7.5MG/ML) **Federal Register determination that product was not discontinued or withdrawn for safety or effectiveness reasons**
Dosage Form/Route: SOLUTION;INJECTION
Application: N020533 | Product #012
Applicant: FRESENIUS KABI USA LLC
Approved: Sep 24, 1996 | RLD: Yes | RS: No | Type: DISCN